FAERS Safety Report 8502279-3 (Version None)
Quarter: 2012Q3

REPORT INFORMATION
  Report Type: 
  Country: None (occurrence: None)
  Receive Date: 20120711
  Receipt Date: 20120629
  Transmission Date: 20120928
  Serious: Yes (Disabling)
  Sender: FDA-Public Use
  Company Number: ES-MPIJNJ-2011-00478

PATIENT

DRUGS (4)
  1. THALIDOMIDE [Suspect]
     Indication: MULTIPLE MYELOMA
     Dosage: 100 MG, UNK
     Route: 048
     Dates: start: 20070605, end: 20071110
  2. VELCADE [Suspect]
     Indication: MULTIPLE MYELOMA
     Dosage: 1.3 MG/M2, UNK
     Route: 042
     Dates: start: 20070605, end: 20071102
  3. INTERFERON ALFA-2B [Suspect]
     Indication: MULTIPLE MYELOMA
     Dosage: 1.5 UNK, UNK
     Route: 058
     Dates: start: 20080428, end: 20110202
  4. INFLUENZA VACCINE [Suspect]
     Indication: PROPHYLAXIS

REACTIONS (1)
  - MYOPATHY [None]
